FAERS Safety Report 8400410-1 (Version None)
Quarter: 2012Q2

REPORT INFORMATION
  Report Type: 
  Country: None (occurrence: None)
  Receive Date: 20120531
  Receipt Date: 20120524
  Transmission Date: 20120825
  Serious: Yes (Hospitalization)
  Sender: FDA-Public Use
  Company Number: BE-ABBOTT-12P-013-0939045-00

PATIENT
  Sex: Male
  Weight: 82 kg

DRUGS (7)
  1. BISOPROLOL FUMARATE [Concomitant]
     Indication: HYPERTENSION
  2. ASPIRIN [Concomitant]
     Indication: CARDIOVASCULAR EVENT PROPHYLAXIS
  3. RAMIPRIL [Concomitant]
     Indication: HYPERTENSION
  4. FOLIC ACID [Concomitant]
     Indication: RHEUMATOID ARTHRITIS
  5. PROSTA URGENIN [Concomitant]
     Indication: BENIGN PROSTATIC HYPERPLASIA
  6. HUMIRA [Suspect]
     Indication: RHEUMATOID ARTHRITIS
     Dates: start: 20100210
  7. METHOTREXATE [Concomitant]
     Indication: RHEUMATOID ARTHRITIS
     Route: 048

REACTIONS (2)
  - SPINAL COLUMN STENOSIS [None]
  - INTERVERTEBRAL DISC DEGENERATION [None]
